FAERS Safety Report 11147667 (Version 3)
Quarter: 2015Q3

REPORT INFORMATION
  Report Type: Report from Study
  Country: CA (occurrence: CA)
  Receive Date: 20150529
  Receipt Date: 20150727
  Transmission Date: 20151125
  Serious: Yes (Other)
  Sender: FDA-Public Use
  Company Number: CA-ROCHE-1366721

PATIENT
  Age: 58 Year
  Sex: Female
  Weight: 120.2 kg

DRUGS (21)
  1. IBUPROFEN. [Concomitant]
     Active Substance: IBUPROFEN
  2. HYDROMORPHONE [Concomitant]
     Active Substance: HYDROMORPHONE
  3. FUROSEMIDE. [Concomitant]
     Active Substance: FUROSEMIDE
  4. LISINOPRIL. [Concomitant]
     Active Substance: LISINOPRIL
  5. NORTRIPTYLINE [Concomitant]
     Active Substance: NORTRIPTYLINE
  6. LASIX [Concomitant]
     Active Substance: FUROSEMIDE
  7. SEROQUEL [Concomitant]
     Active Substance: QUETIAPINE FUMARATE
  8. HYDROCHLOROTHIAZIDE. [Concomitant]
     Active Substance: HYDROCHLOROTHIAZIDE
  9. DIPHENHYDRAMINE HCL [Concomitant]
     Active Substance: DIPHENHYDRAMINE HYDROCHLORIDE
     Indication: PREMEDICATION
     Route: 048
     Dates: start: 20130320
  10. FOSAMAX [Concomitant]
     Active Substance: ALENDRONATE SODIUM
  11. METHYLPREDNISOLONE. [Concomitant]
     Active Substance: METHYLPREDNISOLONE
     Indication: PREMEDICATION
     Route: 042
     Dates: start: 20130320
  12. RITUXAN [Suspect]
     Active Substance: RITUXIMAB
     Indication: RHEUMATOID ARTHRITIS
     Dosage: MOST RECENT DOSE 10/DEC/2014
     Route: 042
     Dates: start: 20130320
  13. VOLTAREN [Concomitant]
     Active Substance: DICLOFENAC SODIUM
  14. SULPHASALAZINE [Concomitant]
     Active Substance: SULFASALAZINE
  15. METHOTREXATE [Suspect]
     Active Substance: METHOTREXATE
     Indication: PRODUCT USED FOR UNKNOWN INDICATION
     Route: 065
     Dates: end: 201504
  16. FOLIC ACID. [Concomitant]
     Active Substance: FOLIC ACID
  17. CLONAZEPAM. [Concomitant]
     Active Substance: CLONAZEPAM
  18. VENLAFAXINE [Concomitant]
     Active Substance: VENLAFAXINE HYDROCHLORIDE
  19. ACETAMINOPHEN. [Concomitant]
     Active Substance: ACETAMINOPHEN
     Indication: PREMEDICATION
     Route: 048
     Dates: start: 20130320
  20. ATORVASTATIN [Concomitant]
     Active Substance: ATORVASTATIN
  21. QUETIAPINE [Concomitant]
     Active Substance: QUETIAPINE

REACTIONS (7)
  - Hepatic enzyme abnormal [Unknown]
  - Rheumatoid arthritis [Not Recovered/Not Resolved]
  - Weight increased [Not Recovered/Not Resolved]
  - Type 2 diabetes mellitus [Unknown]
  - Tendon rupture [Unknown]
  - Fall [Unknown]
  - Psoriasis [Unknown]

NARRATIVE: CASE EVENT DATE: 201504
